FAERS Safety Report 8245951-5 (Version None)
Quarter: 2012Q1

REPORT INFORMATION
  Report Type: 
  Country: None (occurrence: None)
  Receive Date: 20120330
  Receipt Date: 20120306
  Transmission Date: 20120608
  Serious: No
  Sender: FDA-Public Use
  Company Number: US-PFIZER INC-2012061311

PATIENT
  Sex: Female

DRUGS (13)
  1. EFFEXOR XR [Suspect]
     Dosage: UNK
  2. ANTIVERT [Suspect]
     Dosage: UNK
  3. VIBRAMYCIN [Suspect]
     Dosage: UNK
  4. ZYRTEC [Suspect]
     Dosage: UNK
  5. VISTARIL [Suspect]
     Dosage: UNK
  6. MEDROL [Suspect]
     Dosage: UNK
  7. PROTONIX [Suspect]
     Dosage: UNK
  8. PRISTIQ [Suspect]
     Dosage: UNK
  9. RELPAX [Suspect]
     Dosage: UNK
  10. ZOLOFT [Suspect]
     Dosage: UNK
  11. DIFLUCAN [Suspect]
     Dosage: UNK
  12. NEURONTIN [Suspect]
     Dosage: UNK
  13. ZITHROMAX [Suspect]
     Dosage: UNK

REACTIONS (3)
  - BLOOD PRESSURE FLUCTUATION [None]
  - DEPRESSION [None]
  - BLOOD CHOLESTEROL ABNORMAL [None]
